FAERS Safety Report 9106539 (Version 4)
Quarter: 2013Q4

REPORT INFORMATION
  Report Type: Spontaneous
  Country: US (occurrence: US)
  Receive Date: 20130221
  Receipt Date: 20131126
  Transmission Date: 20140711
  Serious: Yes (Hospitalization, Other)
  Sender: FDA-Public Use
  Company Number: US-009507513-1205USA02637

PATIENT
  Sex: Female
  Weight: 67.12 kg

DRUGS (6)
  1. FOSAMAX [Suspect]
     Indication: OSTEOPOROSIS
     Dosage: 70 MG, QW
     Route: 048
     Dates: start: 1999, end: 2005
  2. FOSAMAX [Suspect]
     Indication: OSTEOPENIA
  3. BONIVA [Suspect]
     Indication: OSTEOPOROSIS
     Dosage: UNK
     Dates: start: 2005, end: 2009
  4. BONIVA [Suspect]
     Indication: OSTEOPENIA
  5. CALAN SR [Concomitant]
     Indication: HYPERTENSION
  6. LIPITOR [Concomitant]
     Indication: BLOOD CHOLESTEROL INCREASED

REACTIONS (21)
  - Intramedullary rod insertion [Unknown]
  - Spinal osteoarthritis [Unknown]
  - Osteoarthritis [Unknown]
  - Bladder operation [Unknown]
  - Femur fracture [Unknown]
  - Renal failure [Unknown]
  - Femur fracture [Unknown]
  - Low turnover osteopathy [Unknown]
  - Spinal compression fracture [Unknown]
  - Spinal compression fracture [Unknown]
  - Impaired healing [Unknown]
  - Bone scan abnormal [Unknown]
  - Osteoarthritis [Unknown]
  - Spinal compression fracture [Unknown]
  - Hand fracture [Unknown]
  - Fall [Unknown]
  - Contusion [Unknown]
  - Excoriation [Unknown]
  - Coronary artery disease [Unknown]
  - Dysphagia [Unknown]
  - Back pain [Unknown]
